FAERS Safety Report 25547395 (Version 1)
Quarter: 2025Q3

REPORT INFORMATION
  Report Type: Spontaneous
  Country: US (occurrence: US)
  Receive Date: 20250714
  Receipt Date: 20250714
  Transmission Date: 20251021
  Serious: Yes (Other)
  Sender: BRISTOL-MYERS SQUIBB COMPANY
  Company Number: US-BRISTOL-MYERS SQUIBB COMPANY-2025-098016

PATIENT
  Age: 60 Year
  Sex: Male

DRUGS (3)
  1. ZEPOSIA [Suspect]
     Active Substance: OZANIMOD HYDROCHLORIDE
     Indication: Colitis ulcerative
     Dosage: 1 TIME A DAY
     Route: 048
     Dates: start: 202501
  2. VELSIPITY [Concomitant]
     Active Substance: ETRASIMOD ARGININE
     Indication: Product used for unknown indication
  3. GEL ONE [Concomitant]
     Indication: Product used for unknown indication

REACTIONS (1)
  - Colitis ulcerative [Unknown]
